FAERS Safety Report 5603362-2 (Version None)
Quarter: 2008Q1

REPORT INFORMATION
  Report Type: 
  Country: None (occurrence: None)
  Receive Date: 20080122
  Receipt Date: 20080110
  Transmission Date: 20080703
  Serious: Yes (Hospitalization)
  Sender: FDA-Public Use
  Company Number: GXKR2008FR00765

PATIENT
  Age: 55 Year
  Sex: Female

DRUGS (14)
  1. IBUPROFEN [Suspect]
     Indication: TENDONITIS
     Dosage: 2 DF, BID, ORAL
     Route: 048
     Dates: start: 20071023, end: 20071031
  2. IBUPROFEN [Suspect]
     Indication: TENDONITIS
     Dosage: 2 DF, BID, ORAL
     Route: 048
     Dates: start: 20070201
  3. IBUPROFEN [Suspect]
     Indication: TENDONITIS
     Dosage: 2 DF, BID, ORAL
     Route: 048
     Dates: start: 20070301
  4. IBUPROFEN [Suspect]
     Indication: TENDONITIS
     Dosage: 2 DF, BID, ORAL
     Route: 048
     Dates: start: 20070601
  5. IBUPROFEN [Suspect]
     Indication: TENDONITIS
     Dosage: 2 DF, BID, ORAL
     Route: 048
     Dates: start: 20070701
  6. IBUPROFEN [Suspect]
     Indication: TENDONITIS
     Dosage: 2 DF, BID, ORAL
     Route: 048
     Dates: start: 20070901
  7. ADVIL [Concomitant]
  8. TRANXENE [Concomitant]
  9. NOCTRAN (ACEPROMAZINE, ACEPROMETAZINE, CLORAZEPATE DIPOTASSIUM) UNKNOW [Concomitant]
  10. CARBAMAZEPINE [Concomitant]
  11. LEVOTHYROXINE SODIUM [Concomitant]
  12. MEDIATOR (BENFLUOREX HYDROCHLORIDE) [Concomitant]
  13. IXEL (MILNACIPRAN) [Concomitant]
  14. ACETAMINOPHEN [Concomitant]

REACTIONS (2)
  - COLITIS ULCERATIVE [None]
  - PROCTOCOLITIS [None]
